FAERS Safety Report 5605897-5 (Version None)
Quarter: 2008Q1

REPORT INFORMATION
  Report Type: 
  Country: None (occurrence: None)
  Receive Date: 20080125
  Receipt Date: 20080125
  Transmission Date: 20080703
  Serious: Yes (Life-Threatening)
  Sender: FDA-Public Use
  Company Number: None

PATIENT
  Age: 67 Year
  Sex: Male

DRUGS (3)
  1. HEPARIN [Suspect]
     Indication: CARDIOVASCULAR DISORDER
     Dosage: 5000UNITS BID IV
     Route: 042
     Dates: start: 20071103, end: 20071114
  2. HEPARIN [Suspect]
     Indication: SURGERY
     Dosage: 5000UNITS BID IV
     Route: 042
     Dates: start: 20071103, end: 20071114
  3. WARFARIN SODIUM [Suspect]
     Dosage: 5MG EVERYDAY PO
     Route: 048

REACTIONS (2)
  - CYANOSIS [None]
  - THROMBOCYTOPENIA [None]
